FAERS Safety Report 14205118 (Version 1)
Quarter: 2017Q4

REPORT INFORMATION
  Report Type: Spontaneous
  Country: SE (occurrence: SE)
  Receive Date: 20171120
  Receipt Date: 20171120
  Transmission Date: 20180321
  Serious: Yes (Other)
  Sender: FDA-Public Use
  Company Number: SE-MYLANLABS-2017M1072406

PATIENT
  Sex: Female

DRUGS (2)
  1. PRAVIDEL TABLETTER 2,5 MG [Suspect]
     Active Substance: BROMOCRIPTINE
     Dosage: UNK
     Dates: start: 20171104
  2. PRAVIDEL TABLETTER 2,5 MG [Suspect]
     Active Substance: BROMOCRIPTINE
     Indication: HYPERPROLACTINAEMIA
     Dosage: 1 DF, QD
     Dates: start: 1985

REACTIONS (3)
  - Dependence [Unknown]
  - Neoplasm progression [None]
  - Headache [None]
